FAERS Safety Report 5510702-1 (Version None)
Quarter: 2007Q4

REPORT INFORMATION
  Report Type: 
  Country: None (occurrence: None)
  Receive Date: 20071108
  Receipt Date: 20071101
  Transmission Date: 20080405
  Serious: Yes (Hospitalization)
  Sender: FDA-Public Use
  Company Number: A0674723A

PATIENT
  Age: 46 Year
  Sex: Female

DRUGS (12)
  1. WELLBUTRIN XL [Suspect]
     Indication: DEPRESSION
     Dosage: 300MG PER DAY
     Route: 048
     Dates: start: 20070601
  2. PRENATAL VITAMINS [Concomitant]
  3. OMEPRAZOLE [Concomitant]
  4. NEURONTIN [Concomitant]
  5. METHADONE HCL [Concomitant]
  6. KLONOPIN [Concomitant]
  7. CALCIUM [Concomitant]
  8. MAGNESIUM SULFATE [Concomitant]
  9. FENTANYL PATCHES [Concomitant]
  10. DIFLUCAN [Concomitant]
  11. LUNESTA [Concomitant]
  12. TORADOL [Concomitant]

REACTIONS (8)
  - AMNESIA [None]
  - CHEST DISCOMFORT [None]
  - CHEST PAIN [None]
  - DYSPNOEA [None]
  - FATIGUE [None]
  - LEFT VENTRICULAR DYSFUNCTION [None]
  - PAIN IN EXTREMITY [None]
  - WEIGHT INCREASED [None]
